FAERS Safety Report 5504631-7 (Version None)
Quarter: 2007Q4

REPORT INFORMATION
  Report Type: 
  Country: None (occurrence: None)
  Receive Date: 20071101
  Receipt Date: 20071030
  Transmission Date: 20080405
  Serious: Yes (Other)
  Sender: FDA-Public Use
  Company Number: US-BOEHRINGER INGELHEIM PHARMACEUTICALS, INC.-2007-BP-22951PF

PATIENT
  Sex: Female
  Weight: 49 kg

DRUGS (10)
  1. SPIRIVA [Suspect]
     Indication: EMPHYSEMA
     Route: 055
     Dates: start: 20071012
  2. SPIRIVA [Suspect]
     Indication: BRONCHITIS
  3. SPIRIVA [Suspect]
     Indication: LUNG DISORDER
  4. CHANTIX [Suspect]
     Indication: SMOKING CESSATION THERAPY
     Route: 048
     Dates: start: 20071012
  5. ASPIRIN [Concomitant]
     Route: 048
  6. METOPROLOL [Concomitant]
     Route: 048
  7. LISINOPRIL [Concomitant]
     Route: 048
  8. NEURONTIN [Concomitant]
     Indication: NEUROPATHY
     Route: 048
  9. PROAIR HFA INHALER [Concomitant]
  10. SYMBICORT INHALER [Concomitant]

REACTIONS (6)
  - BOWEL MOVEMENT IRREGULARITY [None]
  - CONSTIPATION [None]
  - MALAISE [None]
  - NAUSEA [None]
  - STOMACH DISCOMFORT [None]
  - WEIGHT DECREASED [None]
